FAERS Safety Report 17912564 (Version 1)
Quarter: 2020Q2

REPORT INFORMATION
  Report Type: Spontaneous
  Country: ES (occurrence: ES)
  Receive Date: 20200618
  Receipt Date: 20200618
  Transmission Date: 20200714
  Serious: Yes (Other)
  Sender: FDA-Public Use
  Company Number: ES-BAYER-2020-119298

PATIENT
  Age: 63 Year
  Sex: Male

DRUGS (3)
  1. NEXAVAR [Suspect]
     Active Substance: SORAFENIB
     Indication: HEPATOCELLULAR CARCINOMA
     Dosage: 400 MG DAILY
  2. NEXAVAR [Suspect]
     Active Substance: SORAFENIB
     Indication: HEPATOCELLULAR CARCINOMA
     Dosage: 400 MG DAILY
     Dates: end: 20170915
  3. NEXAVAR [Suspect]
     Active Substance: SORAFENIB
     Indication: HEPATOCELLULAR CARCINOMA
     Dosage: 400 MG, BID
     Dates: start: 20170801

REACTIONS (12)
  - Palmar-plantar erythrodysaesthesia syndrome [Recovered/Resolved]
  - Skin erosion [Recovered/Resolved]
  - Rash [None]
  - Skin mass [Recovering/Resolving]
  - Pain [None]
  - Hepatocellular carcinoma [None]
  - Oedema peripheral [Recovered/Resolved]
  - Skin lesion [None]
  - Skin exfoliation [Recovered/Resolved]
  - Blister [Recovered/Resolved]
  - Hyperkeratosis [Recovered/Resolved]
  - Erythema [Recovered/Resolved]
